FAERS Safety Report 8299271 (Version 3)
Quarter: 2013Q2

REPORT INFORMATION
  Report Type: Spontaneous
  Country: US (occurrence: US)
  Receive Date: 20111219
  Receipt Date: 20130408
  Transmission Date: 20140414
  Serious: Yes (Other)
  Sender: FDA-Public Use
  Company Number: US-ROCHE-1022808

PATIENT
  Sex: Female
  Weight: 98.52 kg

DRUGS (2)
  1. ACCUTANE [Suspect]
     Indication: ACNE
     Route: 065
     Dates: start: 20031121, end: 20040419
  2. ACCUTANE [Suspect]
     Route: 065
     Dates: end: 200805

REACTIONS (5)
  - Irritable bowel syndrome [Unknown]
  - Depression [Unknown]
  - Emotional distress [Unknown]
  - Nervous system disorder [Unknown]
  - Inflammatory bowel disease [Unknown]
